FAERS Safety Report 13897361 (Version 1)
Quarter: 2017Q3

REPORT INFORMATION
  Report Type: Spontaneous
  Country: US (occurrence: US)
  Receive Date: 20170823
  Receipt Date: 20170823
  Transmission Date: 20171127
  Serious: Yes (Other)
  Sender: FDA-Public Use
  Company Number: US-MYLANLABS-2017M1051819

PATIENT

DRUGS (5)
  1. FLUTICASONE PROPIONATE W/SALMETEROL [Interacting]
     Active Substance: FLUTICASONE PROPIONATE\SALMETEROL XINAFOATE
     Indication: CHRONIC OBSTRUCTIVE PULMONARY DISEASE
     Dosage: SALMETEROL 50 MICROG/FLUTICASONE 500MICROG TWICE DAILY
     Route: 055
  2. VORICONAZOLE. [Suspect]
     Active Substance: VORICONAZOLE
     Indication: BRONCHOPULMONARY ASPERGILLOSIS
     Dosage: FOLLOWED BY DOSE REDUCTION
     Route: 048
  3. ESOMEPRAZOLE [Concomitant]
     Active Substance: ESOMEPRAZOLE
     Indication: GASTROOESOPHAGEAL REFLUX DISEASE
     Dosage: 40 MG DAILY
     Route: 048
  4. TIOTROPIUM BROMIDE [Concomitant]
     Active Substance: TIOTROPIUM BROMIDE
     Indication: CHRONIC OBSTRUCTIVE PULMONARY DISEASE
     Dosage: 18 MICROG DAILY
     Route: 055
  5. MOMETASONE [Interacting]
     Active Substance: MOMETASONE
     Indication: CHRONIC OBSTRUCTIVE PULMONARY DISEASE
     Dosage: 50 MICROG DAILY
     Route: 045

REACTIONS (3)
  - Drug interaction [Recovering/Resolving]
  - Adrenal insufficiency [Recovering/Resolving]
  - Cushing^s syndrome [Recovering/Resolving]
